FAERS Safety Report 5128162-1 (Version None)
Quarter: 2006Q4

REPORT INFORMATION
  Report Type: 
  Country: None (occurrence: None)
  Receive Date: 20061011
  Receipt Date: 20060928
  Transmission Date: 20070319
  Serious: Yes (Hospitalization, Other)
  Sender: FDA-Public Use
  Company Number: STI-2006-00621

PATIENT
  Age: 53 Year
  Sex: Female

DRUGS (7)
  1. 234A PANOXYL ACNEGEL 5 (BENZOY PEROXIDE) (BENZOYL PEROXIDE) (GEL) [Suspect]
     Indication: ROSACEA
     Dosage: 1 APP (1 APP, 1 IN 1 DAYS, TOPICAL
     Route: 061
     Dates: start: 20060831, end: 20060901
  2. ERYTHROMYCIN [Concomitant]
  3. ADAPALENE (ADAPALENE) (GEL) [Concomitant]
  4. TOPICAL CLEANSERS (DERMATOLOGICALS) [Concomitant]
  5. ACNE LOTION (SULPHUR 4% - RESORCINOL RESORCINOL) [Concomitant]
  6. TRICLOSAN 1% FOAMING WASH (TRICLOSAN) [Concomitant]
  7. OXY (BENZOYL PEROXIDE) [Concomitant]

REACTIONS (3)
  - DERMATITIS ALLERGIC [None]
  - DERMATITIS CONTACT [None]
  - SWELLING FACE [None]
